FAERS Safety Report 24853971 (Version 1)
Quarter: 2025Q1

REPORT INFORMATION
  Report Type: Spontaneous
  Country: US (occurrence: None)
  Receive Date: 20250117
  Receipt Date: 20250117
  Transmission Date: 20250409
  Serious: No
  Sender: INFORLIFE
  Company Number: US-INFO-20240405

PATIENT
  Sex: Female

DRUGS (1)
  1. CIPROFLOXACIN [Suspect]
     Active Substance: CIPROFLOXACIN

REACTIONS (4)
  - Gastrointestinal disorder [Unknown]
  - Rash [Unknown]
  - Pruritus [Unknown]
  - Dyspnoea [Unknown]
